FAERS Safety Report 17391342 (Version 2)
Quarter: 2020Q1

REPORT INFORMATION
  Report Type: Spontaneous
  Country: BR (occurrence: BR)
  Receive Date: 20200207
  Receipt Date: 20200215
  Transmission Date: 20200409
  Serious: Yes (Other)
  Sender: FDA-Public Use
  Company Number: NVSC2020BR029519

PATIENT
  Age: 66 Year
  Sex: Female

DRUGS (20)
  1. DIOVAN [Suspect]
     Active Substance: VALSARTAN
     Indication: HYPERTENSION
     Dosage: 1 DF, QD (10 YEARS AGO)
     Route: 048
  2. NPH INSULIN [Concomitant]
     Active Substance: INSULIN BEEF
     Indication: DIABETES MELLITUS
     Dosage: UNK, BID  (30UI IN THE MORNING AND 10 UI AT NIGHT) STARTED 40 YEARS AGO
     Route: 058
  3. NOVORAPID [Concomitant]
     Active Substance: INSULIN ASPART
     Indication: DIABETES MELLITUS
     Dosage: 8 U, BID
     Route: 058
  4. EUTHYROX [Concomitant]
     Active Substance: LEVOTHYROXINE SODIUM
     Indication: HYPOTHYROIDISM
     Dosage: 1 DF, QD (STARTED 25 YEARS AGO)
     Route: 048
  5. TREZOR [Concomitant]
     Active Substance: ROSUVASTATIN CALCIUM
     Indication: BLOOD CHOLESTEROL INCREASED
     Dosage: 1 DF, QD (STARTED 12 YEARS AGO)
     Route: 065
  6. LASIX [Concomitant]
     Active Substance: FUROSEMIDE
     Indication: POLYURIA
     Dosage: 1 DF, QD (STARTED 4 OR 5 YEARS AGO)
     Route: 048
     Dates: end: 20200207
  7. DIOVAN [Suspect]
     Active Substance: VALSARTAN
     Dosage: 1 DF, QD (STARTED 2 MONTHS AND STOPPED 1 WEEK AGO)
     Route: 048
  8. BENERVA [Concomitant]
     Active Substance: THIAMINE HYDROCHLORIDE
     Indication: HYPOVITAMINOSIS
     Dosage: 1 DF, QD
     Route: 048
  9. DIGOXINA [Concomitant]
     Active Substance: DIGOXIN
     Indication: ARRHYTHMIA
     Dosage: 1 DF, BID
     Route: 048
     Dates: end: 20200203
  10. LORAZEPAN [Concomitant]
     Active Substance: LORAZEPAM
     Indication: SEDATION
     Dosage: 3 MG, QD (TOOK 1 TABLET AND HALF - TOTALLY 3 MG) STARTED 40 YEARS AGO
     Route: 048
  11. DIVELOL [Concomitant]
     Indication: ARRHYTHMIA
     Dosage: 1 DF, BID
     Route: 048
     Dates: end: 20200203
  12. GLAUB [Concomitant]
     Active Substance: BRIMONIDINE TARTRATE
     Indication: OCULAR HYPERTENSION
     Dosage: 1 DROP EACH EYES QD (STARTED 6 YEARS AGO)
     Route: 031
  13. JANUVIA [Suspect]
     Active Substance: SITAGLIPTIN PHOSPHATE
     Indication: DIABETES MELLITUS
     Dosage: UNK
     Route: 065
  14. OLMECOR [Concomitant]
     Active Substance: OLMESARTAN MEDOXOMIL
     Indication: HYPERTENSION
     Dosage: UNK
     Route: 065
  15. ATENSINA [Concomitant]
     Active Substance: CLONIDINE
     Indication: HYPERTENSION
     Dosage: 1 DF, QD
     Route: 048
  16. FERROUS SULFATE. [Concomitant]
     Active Substance: FERROUS SULFATE
     Indication: ANAEMIA
     Dosage: 1 DF, BID (STARTED 10 YEAR AGO)
     Route: 048
  17. OLMECOR [Concomitant]
     Active Substance: OLMESARTAN MEDOXOMIL
     Dosage: 1 DF, BID (STARTED 2 MONTHS AGO FOR JUST 2 DAYS)
     Route: 048
  18. ASPIRINA PREVENT [Concomitant]
     Active Substance: ASPIRIN
     Indication: THROMBOSIS
     Dosage: 1 DF, QD
     Route: 048
  19. DIOVAN [Suspect]
     Active Substance: VALSARTAN
     Dosage: 1 DF, QD  (STARTED 2 MONTHS AGO)
     Route: 065
  20. AZUKON [Concomitant]
     Active Substance: GLICLAZIDE
     Indication: DIABETES MELLITUS
     Dosage: 1 DF, BID (STARTED 30 YEARS AGO)
     Route: 065

REACTIONS (22)
  - Fatigue [Not Recovered/Not Resolved]
  - Head injury [Recovered/Resolved]
  - Feeling abnormal [Recovering/Resolving]
  - Blister [Recovering/Resolving]
  - Dyspnoea [Not Recovered/Not Resolved]
  - Hypertension [Not Recovered/Not Resolved]
  - Blood pressure increased [Recovered/Resolved]
  - Labyrinthitis [Not Recovered/Not Resolved]
  - Blister [Recovered/Resolved]
  - Fall [Recovered/Resolved]
  - Hypotension [Not Recovered/Not Resolved]
  - Abdominal pain [Recovering/Resolving]
  - Paraesthesia oral [Recovered/Resolved]
  - Abnormal sensation in eye [Recovering/Resolving]
  - Thyroid cyst [Recovered/Resolved]
  - Oedematous kidney [Recovering/Resolving]
  - Varicose vein [Not Recovered/Not Resolved]
  - Liver disorder [Recovering/Resolving]
  - Glaucoma [Unknown]
  - Cataract [Recovered/Resolved]
  - Visual impairment [Unknown]
  - Chromaturia [Recovered/Resolved]

NARRATIVE: CASE EVENT DATE: 201810
